FAERS Safety Report 17898023 (Version 1)
Quarter: 2020Q2

REPORT INFORMATION
  Report Type: Spontaneous
  Country: US (occurrence: US)
  Receive Date: 20200616
  Receipt Date: 20200616
  Transmission Date: 20200714
  Serious: Yes (Other)
  Sender: FDA-Public Use
  Company Number: US-DRREDDYS-USA/USA/20/0124173

PATIENT
  Age: 59 Year
  Sex: Male

DRUGS (4)
  1. WARFARIN [Suspect]
     Active Substance: WARFARIN
     Indication: ANTICOAGULANT THERAPY
     Route: 048
  2. BIVALIRUDIN INJECTION [Suspect]
     Active Substance: BIVALIRUDIN
     Route: 040
  3. BIVALIRUDIN INJECTION [Suspect]
     Active Substance: BIVALIRUDIN
     Dosage: MG/KG/HOUR
     Route: 040
  4. BIVALIRUDIN INJECTION [Suspect]
     Active Substance: BIVALIRUDIN
     Indication: ANTICOAGULANT THERAPY
     Route: 040

REACTIONS (1)
  - Pericardial effusion [Recovering/Resolving]
